FAERS Safety Report 25596171 (Version 1)
Quarter: 2025Q3

REPORT INFORMATION
  Report Type: Spontaneous
  Country: US (occurrence: US)
  Receive Date: 20250723
  Receipt Date: 20250723
  Transmission Date: 20251021
  Serious: No
  Sender: SANOFI AVENTIS
  Company Number: US-SANOFI-02595401

PATIENT
  Sex: Male

DRUGS (1)
  1. DUPIXENT [Suspect]
     Active Substance: DUPILUMAB
     Route: 065
     Dates: end: 20250702

REACTIONS (5)
  - Skin lesion [Unknown]
  - Skin atrophy [Unknown]
  - Contusion [Unknown]
  - Skin swelling [Unknown]
  - Pruritus [Recovering/Resolving]
